FAERS Safety Report 5757157-X (Version None)
Quarter: 2008Q2

REPORT INFORMATION
  Report Type: 
  Country: None (occurrence: None)
  Receive Date: 20080603
  Receipt Date: 20080527
  Transmission Date: 20081010
  Serious: No
  Sender: FDA-Public Use
  Company Number: CN-JNJFOC-20080503379

PATIENT
  Age: 19 Year
  Sex: Male

DRUGS (4)
  1. TYLENOL (CAPLET) [Suspect]
  2. TYLENOL (CAPLET) [Suspect]
     Indication: PYREXIA
     Dosage: 1300 MG EVERY 6 TO 8 HOURS FOR A TOTAL OF 3900 MG
  3. GAN MAO LING PIAN [Concomitant]
     Indication: NASOPHARYNGITIS
     Dosage: ONCE
     Route: 048
  4. QING KAI LING DI WAN [Concomitant]
     Indication: NASOPHARYNGITIS

REACTIONS (2)
  - HYPOAESTHESIA [None]
  - RASH [None]
